FAERS Safety Report 7573566-0 (Version None)
Quarter: 2011Q2

REPORT INFORMATION
  Report Type: 
  Country: None (occurrence: None)
  Receive Date: 20110627
  Receipt Date: 20110621
  Transmission Date: 20111010
  Serious: Yes (Hospitalization)
  Sender: FDA-Public Use
  Company Number: US-B.I. PHARMACEUTICALS,INC./RIDGEFIELD-2011-BP-15988BP

PATIENT
  Sex: Female
  Weight: 60.32 kg

DRUGS (6)
  1. PRADAXA [Suspect]
     Dosage: 150 MG
     Route: 048
  2. COREG [Concomitant]
     Dosage: 50 MG
     Route: 048
     Dates: start: 20090804
  3. ALDACTONE [Concomitant]
     Dosage: 50 MG
     Route: 048
     Dates: start: 20110329
  4. HYDRALAZINE HCL [Concomitant]
     Dosage: 25 MG
     Route: 048
     Dates: start: 20110520
  5. RAMIPRIL [Concomitant]
     Dosage: 5 MG
     Route: 048
     Dates: start: 20090528
  6. SODIUM BICARBONATE [Concomitant]
     Dosage: 1300 MG
     Route: 048
     Dates: start: 20110419

REACTIONS (2)
  - ANAEMIA [None]
  - GASTROINTESTINAL HAEMORRHAGE [None]
